FAERS Safety Report 7758348-9 (Version None)
Quarter: 2011Q3

REPORT INFORMATION
  Report Type: 
  Country: None (occurrence: None)
  Receive Date: 20110919
  Receipt Date: 20110906
  Transmission Date: 20111222
  Serious: Yes (Hospitalization, Other)
  Sender: FDA-Public Use
  Company Number: GB-RANBAXY-2011R1-44166

PATIENT
  Age: 51 Year
  Sex: Female

DRUGS (3)
  1. SUMATRIPTAN SUCCINATE [Suspect]
     Indication: MIGRAINE
     Dosage: UNK,UNK
     Route: 065
  2. ACETAMINPHEN AND CODEINE PHOSPHATE [Suspect]
     Indication: MUSCULOSKELETAL PAIN
     Dosage: UNK
     Route: 065
  3. PIZOTIFEN [Suspect]
     Indication: MIGRAINE
     Dosage: UNK,UNK
     Route: 065

REACTIONS (3)
  - MIGRAINE [None]
  - HEADACHE [None]
  - CEREBRAL VASOCONSTRICTION [None]
